FAERS Safety Report 8902751 (Version 1)
Quarter: 2012Q4

REPORT INFORMATION
  Report Type: Report from Study
  Country: JP (occurrence: JP)
  Receive Date: 20121112
  Receipt Date: 20121112
  Transmission Date: 20130627
  Serious: Yes (Life-Threatening, Hospitalization)
  Sender: FDA-Public Use
  Company Number: JP-VERTEX PHARMACEUTICAL INC.-AE-2012-002729

PATIENT
  Age: 56 Year
  Sex: Male

DRUGS (10)
  1. VX-950 (TELAPREVIR) [Suspect]
     Indication: CHRONIC HEPATITIS C
     Dosage: 2250 mg, qd
     Route: 048
     Dates: start: 20120209, end: 20120216
  2. VX-950 (TELAPREVIR) [Suspect]
     Dosage: 1500 mg, qd
     Route: 048
     Dates: start: 20120217, end: 20120222
  3. PEGINTERFERON ALFA-2B [Concomitant]
     Dosage: 1.5 ?g/kg, qw
     Route: 058
     Dates: start: 20120209, end: 20120222
  4. RIBAVIRIN [Concomitant]
     Dosage: 600 mg, qd
     Route: 048
     Dates: start: 20120209, end: 20120222
  5. NORVASC [Concomitant]
     Dosage: 5 mg, qd
     Route: 048
     Dates: end: 20120222
  6. NU-LOTAN [Concomitant]
     Dosage: 50 mg, qd
     Route: 048
     Dates: end: 20120222
  7. LASIX                              /00032601/ [Concomitant]
     Dosage: 20 mg, qd
     Route: 048
     Dates: end: 20120222
  8. ALDACTONE A [Concomitant]
     Dosage: 25 mg, qd
     Route: 048
     Dates: end: 20120222
  9. AMARYL [Concomitant]
     Dosage: 1 mg, qd
     Route: 048
     Dates: end: 20120222
  10. NOVORAPID [Concomitant]
     Dosage: 10 units/ morning, 4 units/ noon, 6 units/ evening
     Route: 058
     Dates: end: 20120222

REACTIONS (8)
  - Cardiac arrest [Recovered/Resolved]
  - Renal disorder [Recovered/Resolved]
  - Hyperkalaemia [Recovered/Resolved]
  - Blood urea increased [None]
  - Blood creatinine increased [None]
  - Renal failure acute [None]
  - Dialysis [None]
  - Decreased appetite [None]
